FAERS Safety Report 6575172-3 (Version None)
Quarter: 2010Q1

REPORT INFORMATION
  Report Type: 
  Country: None (occurrence: None)
  Receive Date: 20100209
  Receipt Date: 20100204
  Transmission Date: 20100710
  Serious: Yes (Death)
  Sender: FDA-Public Use
  Company Number: CH-ASTRAZENECA-2010SE05276

PATIENT
  Age: 37 Year
  Sex: Male

DRUGS (1)
  1. SEROQUEL [Suspect]
     Indication: AGITATION
     Route: 048
     Dates: start: 20100118, end: 20100118

REACTIONS (1)
  - SUDDEN DEATH [None]
